FAERS Safety Report 17212595 (Version 4)
Quarter: 2021Q2

REPORT INFORMATION
  Report Type: Report from Study
  Country: JP (occurrence: JP)
  Receive Date: 20191230
  Receipt Date: 20210407
  Transmission Date: 20210716
  Serious: Yes (Death, Other)
  Sender: FDA-Public Use
  Company Number: JP-GLAXOSMITHKLINE-JP2019JPN236130

PATIENT
  Age: 5 Decade
  Sex: Male
  Weight: 53 kg

DRUGS (2)
  1. WARFARIN (JAPANESE TRADENAME) [Concomitant]
     Active Substance: WARFARIN POTASSIUM
     Indication: ANTIPHOSPHOLIPID SYNDROME
     Dosage: UNK
  2. BELIMUMAB [Suspect]
     Active Substance: BELIMUMAB
     Dosage: UNK
     Route: 041
     Dates: start: 20180219

REACTIONS (3)
  - Heart rate decreased [Unknown]
  - Subarachnoid haemorrhage [Fatal]
  - Vertebral artery dissection [Fatal]

NARRATIVE: CASE EVENT DATE: 20191017
